FAERS Safety Report 25767546 (Version 1)
Quarter: 2025Q3

REPORT INFORMATION
  Report Type: Other
  Country: US (occurrence: US)
  Receive Date: 20250905
  Receipt Date: 20250905
  Transmission Date: 20251020
  Serious: Yes (Life-Threatening, Hospitalization, Other)
  Sender: EVEREST LIFE SCIENCES LLC
  Company Number: US-Everest Life Sciences LLC-2183912

PATIENT
  Age: 55 Year
  Sex: Male

DRUGS (8)
  1. DAPSONE [Suspect]
     Active Substance: DAPSONE
     Indication: Suicide attempt
  2. AMLODIPINE [Suspect]
     Active Substance: AMLODIPINE BESYLATE
  3. ZOLPIDEM TARTRATE [Suspect]
     Active Substance: ZOLPIDEM TARTRATE
  4. TRIUMEQ [Suspect]
     Active Substance: ABACAVIR SULFATE\DOLUTEGRAVIR SODIUM\LAMIVUDINE
  5. EZETIMIBE [Suspect]
     Active Substance: EZETIMIBE
  6. METHOCARBAMOL [Suspect]
     Active Substance: METHOCARBAMOL
  7. DIAZEPAM [Suspect]
     Active Substance: DIAZEPAM
  8. CARVEDILOL [Suspect]
     Active Substance: CARVEDILOL

REACTIONS (10)
  - Hallucination, auditory [Recovering/Resolving]
  - Product use in unapproved indication [Unknown]
  - Intentional overdose [Unknown]
  - Somnolence [Recovering/Resolving]
  - Hypotension [Recovering/Resolving]
  - Methaemoglobinaemia [Recovering/Resolving]
  - Toxicity to various agents [Recovering/Resolving]
  - Unresponsive to stimuli [Recovering/Resolving]
  - Depressed level of consciousness [Recovering/Resolving]
  - Acute kidney injury [Recovering/Resolving]
